FAERS Safety Report 20583468 (Version 2)
Quarter: 2022Q1

REPORT INFORMATION
  Report Type: Report from Study
  Country: IE (occurrence: None)
  Receive Date: 20220311
  Receipt Date: 20220318
  Transmission Date: 20220423
  Serious: Yes (Death)
  Sender: FDA-Public Use
  Company Number: 2022A107616

PATIENT
  Age: 30745 Day
  Sex: Female

DRUGS (10)
  1. FASENRA [Suspect]
     Active Substance: BENRALIZUMAB
     Indication: Asthma
     Dosage: AS PER PRESCRIPTION30.0MG UNKNOWN
     Route: 058
     Dates: start: 20211109
  2. ROSUVASTATIN CALCIUM [Concomitant]
     Active Substance: ROSUVASTATIN CALCIUM
     Route: 050
  3. TEMAZEPAM [Concomitant]
     Active Substance: TEMAZEPAM
     Route: 050
  4. BISOP [Concomitant]
     Route: 050
  5. PREDNISOLONE [Concomitant]
     Active Substance: PREDNISOLONE
     Route: 050
  6. FLUTICASONE FUROATE\VILANTEROL TRIFENATATE [Concomitant]
     Active Substance: FLUTICASONE FUROATE\VILANTEROL TRIFENATATE
     Route: 050
  7. INCRUSE ELLIPTA [Concomitant]
     Active Substance: UMECLIDINIUM BROMIDE
     Route: 050
  8. XARELTO [Concomitant]
     Active Substance: RIVAROXABAN
     Route: 050
  9. ALBUTEROL [Concomitant]
     Active Substance: ALBUTEROL
     Dosage: 200.0MG AS REQUIRED
     Route: 050
  10. CALCIUM CARBONATE [Concomitant]
     Active Substance: CALCIUM CARBONATE
     Route: 050

REACTIONS (1)
  - Death [Fatal]

NARRATIVE: CASE EVENT DATE: 20220207
